FAERS Safety Report 17484481 (Version 1)
Quarter: 2020Q1

REPORT INFORMATION
  Report Type: Spontaneous
  Country: US (occurrence: US)
  Receive Date: 20200302
  Receipt Date: 20200302
  Transmission Date: 20200409
  Serious: No
  Sender: FDA-Public Use
  Company Number: US-BAYER-2020-033174

PATIENT
  Age: 46 Year
  Sex: Female

DRUGS (3)
  1. RIOCIGUAT SPECIALTY PHARMACY PROVIDER [Suspect]
     Active Substance: RIOCIGUAT
     Dosage: UNK, TID
  2. RIOCIGUAT SPECIALTY PHARMACY PROVIDER [Suspect]
     Active Substance: RIOCIGUAT
     Dosage: UNK, BID
  3. ORENITRAM [Suspect]
     Active Substance: TREPROSTINIL
     Indication: PULMONARY ARTERIAL HYPERTENSION
     Dosage: 5 MG, BID
     Route: 048
     Dates: start: 20190626

REACTIONS (2)
  - Product dose omission [None]
  - Inappropriate schedule of product administration [None]

NARRATIVE: CASE EVENT DATE: 201912
